FAERS Safety Report 9633849 (Version 1)
Quarter: 2013Q4

REPORT INFORMATION
  Report Type: Spontaneous
  Country: US (occurrence: US)
  Receive Date: 20131021
  Receipt Date: 20131021
  Transmission Date: 20140711
  Serious: Yes (Hospitalization)
  Sender: FDA-Public Use
  Company Number: US-PFIZER INC-2013299550

PATIENT
  Age: 46 Year
  Sex: Male
  Weight: 127 kg

DRUGS (8)
  1. LYRICA [Suspect]
     Indication: NEUROPATHY PERIPHERAL
     Dosage: 75 MG, 2X/DAY
     Dates: start: 2012
  2. LYRICA [Suspect]
     Indication: NERVE INJURY
  3. ZANAFLEX [Concomitant]
     Dosage: 4 MG, 2X/DAY
  4. CELEXA [Concomitant]
     Dosage: 40 MG, 1X/DAY
  5. RISPERDAL [Concomitant]
     Dosage: 1 MG, 1X/DAY
  6. NEURONTIN [Concomitant]
     Dosage: 600 MG, 1X/DAY
  7. PERCOCET [Concomitant]
     Dosage: 10 MG OXYCODONE HYDROCHLORIDE/325  PARACETAMOL MG, 4X/DAY
  8. TRAZODONE [Concomitant]
     Dosage: 150 MG, 1X/DAY

REACTIONS (1)
  - Major depression [Unknown]
